FAERS Safety Report 15276292 (Version 1)
Quarter: 2018Q4

REPORT INFORMATION
  Report Type: Spontaneous
  Country: PL (occurrence: PL)
  Receive Date: 20180814
  Receipt Date: 20180814
  Transmission Date: 20190204
  Serious: Yes (Death)
  Sender: FDA-Public Use
  Company Number: PL-NALPROPION PHARMACEUTICALS INC-2053692

PATIENT
  Age: 68 Year
  Sex: Male
  Weight: 126 kg

DRUGS (6)
  1. PLAVIX [Concomitant]
     Active Substance: CLOPIDOGREL BISULFATE
     Route: 048
     Dates: start: 201801, end: 20180518
  2. ASA [Concomitant]
     Active Substance: ASPIRIN
     Route: 065
  3. ATORVASTATIN [Concomitant]
     Active Substance: ATORVASTATIN
     Route: 065
  4. CONTRAVE [Suspect]
     Active Substance: BUPROPION HYDROCHLORIDE\NALTREXONE HYDROCHLORIDE
     Indication: OBESITY
     Route: 048
     Dates: start: 20180514, end: 20180518
  5. ZOFENOPRIL [Concomitant]
     Active Substance: ZOFENOPRIL
     Route: 065
  6. NEBIVOLOL. [Concomitant]
     Active Substance: NEBIVOLOL
     Route: 065

REACTIONS (2)
  - Central nervous system haemorrhage [Fatal]
  - Seizure [Fatal]

NARRATIVE: CASE EVENT DATE: 20180518
